FAERS Safety Report 10741617 (Version 1)
Quarter: 2015Q1

REPORT INFORMATION
  Report Type: Spontaneous
  Country: US (occurrence: None)
  Receive Date: 20150123
  Receipt Date: 20150123
  Transmission Date: 20150721
  Serious: Yes (Other)
  Sender: FDA-Public Use
  Company Number: 2015-10326

PATIENT
  Age: 73 Year
  Weight: 60.8 kg

DRUGS (14)
  1. SITAGLIPTIN [Concomitant]
     Active Substance: SITAGLIPTIN
  2. CENTRUM SILVER [Concomitant]
     Active Substance: VITAMINS
  3. TIMOPTIC [Concomitant]
     Active Substance: TIMOLOL MALEATE
  4. GLYBURIDE. [Concomitant]
     Active Substance: GLYBURIDE
  5. VITAMIN B12 [Concomitant]
     Active Substance: CYANOCOBALAMIN
  6. OMEGA 3 [Concomitant]
     Active Substance: OMEGA-3 FATTY ACIDS
  7. ASPIRIN. [Concomitant]
     Active Substance: ASPIRIN
  8. AVAPRO [Concomitant]
     Active Substance: IRBESARTAN
  9. METFORMIN [Concomitant]
     Active Substance: METFORMIN HYDROCHLORIDE
  10. IRON [Concomitant]
     Active Substance: IRON
  11. RESTASIS [Concomitant]
     Active Substance: CYCLOSPORINE
  12. XALATAN [Concomitant]
     Active Substance: LATANOPROST
  13. AFLIBERCEPT [Suspect]
     Active Substance: AFLIBERCEPT
     Indication: DIABETIC RETINAL OEDEMA
     Route: 031
     Dates: start: 20111021
  14. VITAMIN D3 [Concomitant]
     Active Substance: CHOLECALCIFEROL

REACTIONS (1)
  - Retinal artery occlusion [None]

NARRATIVE: CASE EVENT DATE: 20140314
